FAERS Safety Report 9601203 (Version 4)
Quarter: 2014Q1

REPORT INFORMATION
  Report Type: Spontaneous
  Country: US (occurrence: US)
  Receive Date: 20131005
  Receipt Date: 20140107
  Transmission Date: 20141002
  Serious: Yes (Other)
  Sender: FDA-Public Use
  Company Number: US-009507513-1309USA009308

PATIENT
  Sex: Female

DRUGS (7)
  1. PEGINTRON [Suspect]
     Indication: HEPATITIS C
     Dosage: 0.5ML/0.4ML, QD
     Route: 058
     Dates: start: 20130819, end: 20131117
  2. REBETOL [Suspect]
     Indication: HEPATITIS C
     Dosage: DOWN FROM 2 AND 2 TO 2 AND 1 DAILY
     Route: 048
     Dates: start: 2013, end: 20131119
  3. REBETOL [Suspect]
     Dosage: 2 AND 2
     Route: 048
     Dates: start: 20130819, end: 2013
  4. D3 [Concomitant]
     Dosage: 1 DF, UNK
  5. OMEGA-3 [Concomitant]
     Dosage: 1 DF, UNK
  6. LEVOCETIRIZINE [Concomitant]
     Dosage: 2.5 MG, UNK
  7. LOSARTAN [Concomitant]
     Dosage: 25 MG, UNK

REACTIONS (16)
  - Blood disorder [Unknown]
  - Dysgeusia [Unknown]
  - Pain [Recovered/Resolved]
  - Neutrophil count decreased [Unknown]
  - Dizziness [Unknown]
  - Headache [Unknown]
  - Fatigue [Recovered/Resolved]
  - Asthenia [Recovered/Resolved]
  - Somnolence [Recovered/Resolved]
  - Malaise [Recovered/Resolved]
  - Influenza like illness [Recovered/Resolved]
  - Neutrophil count decreased [Unknown]
  - Alopecia [Not Recovered/Not Resolved]
  - Hypersensitivity [Unknown]
  - Dysgeusia [Unknown]
  - Asthenia [Recovered/Resolved]
